FAERS Safety Report 12667287 (Version 1)
Quarter: 2016Q3

REPORT INFORMATION
  Report Type: Spontaneous
  Country: US (occurrence: None)
  Receive Date: 20160818
  Receipt Date: 20160818
  Transmission Date: 20161109
  Serious: Yes (Hospitalization)
  Sender: FDA-Public Use
  Company Number: None

PATIENT
  Age: 15 Year
  Sex: Female
  Weight: 55.5 kg

DRUGS (6)
  1. VINCRISTINE SULFATE. [Suspect]
     Active Substance: VINCRISTINE SULFATE
     Dates: end: 20160804
  2. METHOTREXATE. [Suspect]
     Active Substance: METHOTREXATE
     Dates: end: 20160804
  3. CYTARABINE. [Suspect]
     Active Substance: CYTARABINE
     Dates: end: 20160720
  4. DAUNORUBICIN [Suspect]
     Active Substance: DAUNORUBICIN
     Dates: end: 20160804
  5. ONCASPAR [Suspect]
     Active Substance: PEGASPARGASE
     Dates: end: 20160724
  6. PREDNISONE. [Suspect]
     Active Substance: PREDNISONE
     Dates: end: 20160805

REACTIONS (7)
  - Abdominal pain lower [None]
  - Intestinal perforation [None]
  - Thrombosis mesenteric vessel [None]
  - Intestinal ischaemia [None]
  - Faecaloma [None]
  - Hypotension [None]
  - Tachycardia [None]

NARRATIVE: CASE EVENT DATE: 20160805
